FAERS Safety Report 13261944 (Version 3)
Quarter: 2017Q1

REPORT INFORMATION
  Report Type: Report from Study
  Country: US (occurrence: US)
  Receive Date: 20170222
  Receipt Date: 20170324
  Transmission Date: 20170428
  Serious: Yes (Hospitalization)
  Sender: FDA-Public Use
  Company Number: US-ACTELION-A-US2017-150007

PATIENT
  Age: 57 Year
  Sex: Female
  Weight: 56.69 kg

DRUGS (24)
  1. OPSUMIT [Suspect]
     Active Substance: MACITENTAN
     Dosage: UNK
     Route: 048
     Dates: start: 20170111, end: 20170115
  2. VELETRI [Suspect]
     Active Substance: EPOPROSTENOL
     Dosage: UNK
     Route: 042
  3. COUMADIN [Suspect]
     Active Substance: WARFARIN SODIUM
     Indication: PRODUCT USED FOR UNKNOWN INDICATION
     Route: 065
  4. XARELTO [Concomitant]
     Active Substance: RIVAROXABAN
  5. CALMOSEPTINE [Concomitant]
     Active Substance: MENTHOL\ZINC OXIDE
  6. MULTIVITAMIN [Concomitant]
     Active Substance: VITAMINS
  7. BENADRYL [Concomitant]
     Active Substance: DIPHENHYDRAMINE HYDROCHLORIDE
  8. PROBIOTIC [Concomitant]
     Active Substance: PROBIOTICS NOS
  9. VELETRI [Suspect]
     Active Substance: EPOPROSTENOL
     Indication: PULMONARY ARTERIAL HYPERTENSION
     Dosage: 15 NG/KG, PER MIN
     Route: 042
  10. REVATIO [Concomitant]
     Active Substance: SILDENAFIL CITRATE
  11. SPIRONOLACTONE. [Suspect]
     Active Substance: SPIRONOLACTONE
     Indication: PRODUCT USED FOR UNKNOWN INDICATION
     Route: 065
  12. EPINEPHRINE. [Concomitant]
     Active Substance: EPINEPHRINE
  13. FEXOFENADINE [Concomitant]
     Active Substance: FEXOFENADINE\FEXOFENADINE HYDROCHLORIDE
  14. TRIAMCINOLONE [Concomitant]
     Active Substance: TRIAMCINOLONE
  15. VELETRI [Suspect]
     Active Substance: EPOPROSTENOL
     Dosage: 20 NG/KG, PER MIN
     Route: 042
  16. LACTOBACILLUS ACIDOPHILUS\LACTOBACILLUS BULGARICUS [Concomitant]
     Active Substance: LACTOBACILLUS ACIDOPHILUS\LACTOBACILLUS DELBRUECKII SUBSP. BULGARICUS
  17. POTASSIUM CHLORIDE. [Concomitant]
     Active Substance: POTASSIUM CHLORIDE
  18. AMIODARONE [Concomitant]
     Active Substance: AMIODARONE
  19. BUMETANIDE. [Concomitant]
     Active Substance: BUMETANIDE
  20. IMODIUM A-D [Concomitant]
     Active Substance: LOPERAMIDE HYDROCHLORIDE
  21. ZOFRAN [Concomitant]
     Active Substance: ONDANSETRON HYDROCHLORIDE
  22. FRESH FROZEN PLASMA [Concomitant]
     Active Substance: HUMAN PLASMA
  23. OPSUMIT [Suspect]
     Active Substance: MACITENTAN
     Indication: PULMONARY ARTERIAL HYPERTENSION
     Dosage: 10 MG, QD
     Route: 048
     Dates: start: 20170116
  24. ATARAX [Concomitant]
     Active Substance: HYDROXYZINE HYDROCHLORIDE

REACTIONS (8)
  - Toxicity to various agents [Recovered/Resolved]
  - Acute kidney injury [Recovered/Resolved]
  - Rash [Not Recovered/Not Resolved]
  - Blood disorder [Unknown]
  - Pruritus generalised [Not Recovered/Not Resolved]
  - Hypoaesthesia oral [Not Recovered/Not Resolved]
  - Dry skin [Not Recovered/Not Resolved]
  - Unevaluable event [Unknown]

NARRATIVE: CASE EVENT DATE: 20170206
